FAERS Safety Report 25852292 (Version 2)
Quarter: 2025Q4

REPORT INFORMATION
  Report Type: Report from Study
  Country: US (occurrence: None)
  Receive Date: 20250926
  Receipt Date: 20251224
  Transmission Date: 20260117
  Serious: Yes (Other)
  Sender: UCB
  Company Number: US-UCBSA-2025044290

PATIENT
  Age: 5 Year
  Weight: 19 kg

DRUGS (6)
  1. FENFLURAMINE [Suspect]
     Active Substance: FENFLURAMINE
     Indication: Lennox-Gastaut syndrome
     Dosage: 3 MILLILITER, 2X/DAY (BID)
  2. FENFLURAMINE [Suspect]
     Active Substance: FENFLURAMINE
     Dosage: 3.6 MILLILITER, 2X/DAY (BID)
  3. FENFLURAMINE [Suspect]
     Active Substance: FENFLURAMINE
     Dosage: 3.5 MILLILITER, 2X/DAY (BID)
  4. FENFLURAMINE [Suspect]
     Active Substance: FENFLURAMINE
     Dosage: 3.5 MILLILITER, 2X/DAY (BID)
  5. TOPAMAX [Suspect]
     Active Substance: TOPIRAMATE
     Indication: Product used for unknown indication
     Dosage: UNK
  6. TOPAMAX [Suspect]
     Active Substance: TOPIRAMATE
     Dosage: UNK (INCREASED DOSE)

REACTIONS (7)
  - Seizure [Not Recovered/Not Resolved]
  - Somnolence [Not Recovered/Not Resolved]
  - Dizziness [Not Recovered/Not Resolved]
  - Gait inability [Not Recovered/Not Resolved]
  - Aphasia [Not Recovered/Not Resolved]
  - Loss of personal independence in daily activities [Not Recovered/Not Resolved]
  - Drug ineffective [Unknown]
